FAERS Safety Report 22541683 (Version 1)
Quarter: 2023Q2

REPORT INFORMATION
  Report Type: Spontaneous
  Country: GB (occurrence: None)
  Receive Date: 20230609
  Receipt Date: 20230609
  Transmission Date: 20230721
  Serious: Yes (Hospitalization, Other)
  Sender: FDA-Public Use
  Company Number: 2023A134061

PATIENT
  Age: 73 Year
  Sex: Male

DRUGS (4)
  1. QUETIAPINE [Suspect]
     Active Substance: QUETIAPINE
     Indication: Product used for unknown indication
     Dosage: 150.0MG UNKNOWN
  2. BISOPROLOL [Suspect]
     Active Substance: BISOPROLOL
     Indication: Product used for unknown indication
     Dosage: 2.5MG UNKNOWN
  3. EDOXABAN [Concomitant]
     Active Substance: EDOXABAN
     Indication: Cerebrovascular accident
     Dosage: 60.0MG UNKNOWN
  4. THIAMINE [Concomitant]
     Active Substance: THIAMINE
     Dosage: 100.0MG UNKNOWN

REACTIONS (1)
  - Cerebrovascular accident [Unknown]
